FAERS Safety Report 12559860 (Version 1)
Quarter: 2016Q3

REPORT INFORMATION
  Report Type: Spontaneous
  Country: US (occurrence: None)
  Receive Date: 20160714
  Receipt Date: 20160714
  Transmission Date: 20161109
  Serious: Yes (Life-Threatening, Hospitalization)
  Sender: FDA-Public Use
  Company Number: None

PATIENT
  Age: 48 Year
  Sex: Female
  Weight: 83.92 kg

DRUGS (1)
  1. VENLAFAXINE [Suspect]
     Active Substance: VENLAFAXINE HYDROCHLORIDE
     Indication: HOT FLUSH
     Dates: start: 20080202, end: 20160626

REACTIONS (5)
  - Cardiac murmur [None]
  - Bundle branch block left [None]
  - Drug ineffective [None]
  - Cardiac failure [None]
  - Feeling abnormal [None]

NARRATIVE: CASE EVENT DATE: 20160705
